FAERS Safety Report 8174370 (Version 5)
Quarter: 2013Q1

REPORT INFORMATION
  Report Type: Spontaneous
  Country: CA (occurrence: CA)
  Receive Date: 20111010
  Receipt Date: 20130114
  Transmission Date: 20140127
  Serious: Yes (Hospitalization, Other)
  Sender: FDA-Public Use
  Company Number: CA-GILEAD-2011-0044705

PATIENT
  Age: 78 None
  Sex: Male

DRUGS (14)
  1. AMBRISENTAN [Suspect]
     Indication: PULMONARY ARTERIAL HYPERTENSION
     Dosage: 2.5MG PER DAY
     Route: 048
     Dates: start: 20110909, end: 20121231
  2. ALLOPURINOL [Concomitant]
  3. ASA [Concomitant]
  4. ASA [Concomitant]
  5. ATORVASTATIN [Concomitant]
  6. CALCIUM [Concomitant]
  7. MAGNESIUM [Concomitant]
  8. DOXEPIN [Concomitant]
  9. EZETROL [Concomitant]
  10. FUROSEMIDE [Concomitant]
  11. INDAPAMIDE [Concomitant]
  12. OMEGA 3                            /01334101/ [Concomitant]
  13. PANTOLOC                           /01263204/ [Concomitant]
  14. SPECTRUM MULTIVITAMINS [Concomitant]

REACTIONS (4)
  - Loss of consciousness [Recovered/Resolved]
  - Liver function test abnormal [Unknown]
  - Palliative care [Not Recovered/Not Resolved]
  - Fatigue [Recovered/Resolved]
